FAERS Safety Report 14322945 (Version 1)
Quarter: 2017Q4

REPORT INFORMATION
  Report Type: Spontaneous
  Country: US (occurrence: US)
  Receive Date: 20171226
  Receipt Date: 20171226
  Transmission Date: 20180321
  Serious: Yes (Death)
  Sender: FDA-Public Use
  Company Number: US-INSYS THERAPEUTICS, INC-INS201712-000701

PATIENT
  Age: 21 Year
  Sex: Male

DRUGS (12)
  1. CODEINE [Suspect]
     Active Substance: CODEINE
     Indication: DRUG ABUSE
     Route: 051
     Dates: start: 2016
  2. ALPRAZOLAM. [Suspect]
     Active Substance: ALPRAZOLAM
     Route: 048
     Dates: start: 2016
  3. FENTANYL. [Suspect]
     Active Substance: FENTANYL
     Dates: start: 2016
  4. OXYCODONE [Suspect]
     Active Substance: OXYCODONE
     Dates: start: 2016
  5. CODEINE [Suspect]
     Active Substance: CODEINE
     Route: 048
     Dates: start: 2016
  6. FENTANYL. [Suspect]
     Active Substance: FENTANYL
     Indication: DRUG ABUSE
     Route: 051
     Dates: start: 2016
  7. OXYCODONE [Suspect]
     Active Substance: OXYCODONE
     Route: 051
     Dates: start: 2016
  8. FENTANYL. [Suspect]
     Active Substance: FENTANYL
     Route: 048
     Dates: start: 2016
  9. ALPRAZOLAM. [Suspect]
     Active Substance: ALPRAZOLAM
     Indication: DRUG ABUSE
     Route: 051
     Dates: start: 2016
  10. ALPRAZOLAM. [Suspect]
     Active Substance: ALPRAZOLAM
     Dates: start: 2016
  11. CODEINE [Suspect]
     Active Substance: CODEINE
     Dates: start: 2016
  12. OXYCODONE [Suspect]
     Active Substance: OXYCODONE
     Indication: DRUG ABUSE
     Route: 048
     Dates: start: 2016

REACTIONS (2)
  - Incorrect route of drug administration [Unknown]
  - Drug abuse [Fatal]

NARRATIVE: CASE EVENT DATE: 2016
